FAERS Safety Report 10016417 (Version 1)
Quarter: 2014Q1

REPORT INFORMATION
  Report Type: Spontaneous
  Country: US (occurrence: US)
  Receive Date: 20140317
  Receipt Date: 20140317
  Transmission Date: 20141002
  Serious: No
  Sender: FDA-Public Use
  Company Number: US-PFIZER INC-2014076600

PATIENT
  Age: 63 Year
  Sex: Female
  Weight: 65.31 kg

DRUGS (4)
  1. NEURONTIN [Suspect]
     Indication: MYELITIS TRANSVERSE
     Dosage: 300 MG, UNK
     Dates: start: 2013
  2. NEURONTIN [Suspect]
     Dosage: 400 MG, UNK
  3. NEURONTIN [Suspect]
     Dosage: 300 MG, UNK
  4. GABAPENTIN [Suspect]
     Indication: MYELITIS TRANSVERSE
     Dosage: UNK

REACTIONS (1)
  - Drug ineffective [Unknown]
